FAERS Safety Report 8463449-6 (Version None)
Quarter: 2012Q2

REPORT INFORMATION
  Report Type: 
  Country: None (occurrence: None)
  Receive Date: 20120625
  Receipt Date: 20120614
  Transmission Date: 20120825
  Serious: Yes (Other)
  Sender: FDA-Public Use
  Company Number: JP-VERTEX PHARMACEUTICALS INC.-AE-2012-009043

PATIENT
  Age: 52 Year
  Sex: Female

DRUGS (9)
  1. REBETOL [Concomitant]
     Route: 048
     Dates: start: 20120516
  2. URSO 250 [Concomitant]
     Route: 048
  3. FAMOTIDINE [Concomitant]
     Route: 048
     Dates: start: 20120418
  4. ALOSENN [Concomitant]
     Route: 048
  5. PEGINTERFERON ALFA-2B [Concomitant]
     Route: 058
     Dates: start: 20120418
  6. REBETOL [Concomitant]
     Route: 048
     Dates: start: 20120418, end: 20120515
  7. TELAVIC (TELAPREVIR) [Suspect]
     Indication: HEPATITIS C
     Route: 048
     Dates: start: 20120418, end: 20120522
  8. TELAVIC (TELAPREVIR) [Suspect]
     Route: 048
     Dates: start: 20120523
  9. NABOAL SR [Concomitant]
     Route: 048
     Dates: start: 20120418

REACTIONS (1)
  - NEUTROPHIL COUNT DECREASED [None]
